FAERS Safety Report 6803022-6 (Version None)
Quarter: 2010Q2

REPORT INFORMATION
  Report Type: 
  Country: None (occurrence: None)
  Receive Date: 20100628
  Receipt Date: 20100617
  Transmission Date: 20101027
  Serious: Yes (Other)
  Sender: FDA-Public Use
  Company Number: US-BAXTER-2010BH013838

PATIENT
  Age: 47 Year
  Sex: Male
  Weight: 95 kg

DRUGS (3)
  1. FEIBA VH IMMUNO [Suspect]
     Indication: HAEMOPHILIA
     Route: 065
  2. AUTOPLEX [Suspect]
     Indication: HAEMOPHILIA
     Route: 065
     Dates: start: 19980716, end: 19980716
  3. KONYNE [Concomitant]

REACTIONS (2)
  - ANXIETY [None]
  - BLOOD PRESSURE INCREASED [None]
